FAERS Safety Report 8083769-7 (Version None)
Quarter: 2012Q1

REPORT INFORMATION
  Report Type: 
  Country: None (occurrence: None)
  Receive Date: 20120128
  Receipt Date: 20110309
  Transmission Date: 20120608
  Serious: No
  Sender: FDA-Public Use
  Company Number: US-ABBOTT-11P-163-0700377-00

PATIENT
  Sex: Female

DRUGS (9)
  1. NEXIUM [Concomitant]
     Indication: GASTROOESOPHAGEAL REFLUX DISEASE
  2. HUMIRA [Suspect]
     Indication: ANKYLOSING SPONDYLITIS
     Dates: start: 20101101
  3. ASACOL [Concomitant]
     Indication: CROHN'S DISEASE
     Dosage: 400MG X 2 TABLETS, THREE TIMES DAILY
  4. CELEBREX [Concomitant]
     Indication: PRODUCT USED FOR UNKNOWN INDICATION
  5. CITRICAL PLUS D3 [Concomitant]
     Indication: PRODUCT USED FOR UNKNOWN INDICATION
  6. FLUTICASONE PROPIONATE [Concomitant]
     Indication: PRODUCT USED FOR UNKNOWN INDICATION
     Dosage: IN AM
     Route: 045
  7. ENTOCORT EC [Concomitant]
     Indication: CROHN'S DISEASE
     Dosage: 2-3 TABLETS DAILY
  8. ZXYZAL [Concomitant]
     Indication: HYPERSENSITIVITY
  9. CLARITIN [Concomitant]
     Indication: HYPERSENSITIVITY

REACTIONS (3)
  - INJECTION SITE HAEMATOMA [None]
  - FOOT FRACTURE [None]
  - INJECTION SITE ERYTHEMA [None]
